FAERS Safety Report 17475196 (Version 5)
Quarter: 2022Q4

REPORT INFORMATION
  Report Type: Spontaneous
  Country: US (occurrence: US)
  Receive Date: 20200228
  Receipt Date: 20221108
  Transmission Date: 20230113
  Serious: Yes (Other)
  Sender: FDA-Public Use
  Company Number: US-TEVA-2020-US-1189056

PATIENT
  Age: 63 Year
  Sex: Female

DRUGS (1)
  1. PROVIGIL [Suspect]
     Active Substance: MODAFINIL
     Indication: Product used for unknown indication
     Route: 065

REACTIONS (7)
  - Narcolepsy [Unknown]
  - Toxic epidermal necrolysis [Unknown]
  - Nervousness [Unknown]
  - Eye disorder [Unknown]
  - Bedridden [Not Recovered/Not Resolved]
  - General physical health deterioration [Unknown]
  - Pharyngitis streptococcal [Unknown]
